FAERS Safety Report 9658906 (Version 2)
Quarter: 2013Q4

REPORT INFORMATION
  Report Type: Report from Study
  Country: GB (occurrence: GB)
  Receive Date: 20131030
  Receipt Date: 20131127
  Transmission Date: 20140711
  Serious: Yes (Hospitalization, Other)
  Sender: FDA-Public Use
  Company Number: GB-009507513-1310GBR012203

PATIENT
  Age: 79 Year
  Sex: Male
  Weight: 63 kg

DRUGS (12)
  1. DEXAMETHASONE [Suspect]
     Indication: PLASMA CELL MYELOMA
     Dosage: 20 MG, UNK
     Route: 048
     Dates: start: 20130611, end: 20130824
  2. VELCADE [Suspect]
     Indication: PLASMA CELL MYELOMA
     Dosage: 0.7 MG/M2, UNK
     Route: 058
     Dates: start: 20130611, end: 20130823
  3. ACYCLOVIR [Concomitant]
     Indication: ANTIVIRAL PROPHYLAXIS
     Dosage: UNK
     Dates: start: 20130611
  4. CITALOPRAM [Concomitant]
     Indication: DEPRESSION
     Dosage: UNK
     Dates: start: 20090303
  5. SULFAMETHOXAZOLE (+) TRIMETHOPRIM [Concomitant]
     Indication: PROPHYLAXIS
     Dosage: UNK
     Dates: start: 20130612
  6. FINASTERIDE [Concomitant]
     Indication: PROSTATOMEGALY
     Dosage: UNK
     Dates: start: 199605
  7. NITROGLYCERIN [Concomitant]
     Dosage: UNK
     Dates: start: 1997
  8. LACRI LUBE (MINERAL OIL (+) PETROLATUM, WHITE) [Concomitant]
     Indication: DRY EYE
     Dosage: UNK
     Dates: start: 20121221
  9. NICORANDIL [Concomitant]
     Indication: ANGINA PECTORIS
     Dosage: UNK
     Dates: start: 1997
  10. OMEPRAZOLE [Concomitant]
     Dosage: UNK
     Dates: start: 20100805
  11. CLODRONATE DISODIUM [Concomitant]
     Indication: PLASMA CELL MYELOMA
     Dosage: UNK
     Dates: start: 20110830
  12. WARFARIN [Concomitant]
     Indication: ANTICOAGULATION DRUG LEVEL THERAPEUTIC
     Dosage: UNK
     Dates: start: 20041229, end: 20130812

REACTIONS (2)
  - Fall [Recovering/Resolving]
  - Humerus fracture [Recovering/Resolving]
